FAERS Safety Report 7996230-2 (Version None)
Quarter: 2011Q4

REPORT INFORMATION
  Report Type: 
  Country: None (occurrence: None)
  Receive Date: 20111220
  Receipt Date: 20111211
  Transmission Date: 20120403
  Serious: Yes (Hospitalization, Other)
  Sender: FDA-Public Use
  Company Number: US-BAXTER-2011BH039022

PATIENT
  Age: 71 Year
  Sex: Male
  Weight: 98 kg

DRUGS (7)
  1. METFORMIN HCL [Concomitant]
     Indication: PRODUCT USED FOR UNKNOWN INDICATION
     Route: 048
  2. GLIPIZIDE [Concomitant]
     Indication: PRODUCT USED FOR UNKNOWN INDICATION
     Route: 048
  3. PLAVIX [Concomitant]
     Indication: PRODUCT USED FOR UNKNOWN INDICATION
     Route: 048
  4. QUINAPRIL [Concomitant]
     Indication: PRODUCT USED FOR UNKNOWN INDICATION
     Route: 048
  5. HEPARIN SODIUM 1,000 UNITS AND SODIUM CHLORIDE 0.9% [Suspect]
     Indication: CORONARY ARTERY BYPASS
     Route: 042
     Dates: start: 20110825, end: 20110829
  6. FLOMAX [Concomitant]
     Indication: PRODUCT USED FOR UNKNOWN INDICATION
     Route: 048
  7. LANTUS [Concomitant]
     Indication: PRODUCT USED FOR UNKNOWN INDICATION
     Route: 058

REACTIONS (13)
  - HEMIPLEGIA [None]
  - POSTURE ABNORMAL [None]
  - PNEUMONIA [None]
  - RENAL IMPAIRMENT [None]
  - HEPARIN-INDUCED THROMBOCYTOPENIA [None]
  - DYSPEPSIA [None]
  - SPEECH DISORDER [None]
  - LIMB INJURY [None]
  - DYSPNOEA [None]
  - SWELLING [None]
  - INCONTINENCE [None]
  - HYPOPHAGIA [None]
  - CEREBROVASCULAR ACCIDENT [None]
